FAERS Safety Report 25726143 (Version 1)
Quarter: 2025Q3

REPORT INFORMATION
  Report Type: Spontaneous
  Country: GB (occurrence: GB)
  Receive Date: 20250826
  Receipt Date: 20250826
  Transmission Date: 20251021
  Serious: Yes (Other)
  Sender: HETERO
  Company Number: GB-MHRA-TPP6397969C10463146YC1754987546481

PATIENT
  Age: 74 Year
  Sex: Male
  Weight: 80.998 kg

DRUGS (16)
  1. DULOXETINE [Suspect]
     Active Substance: DULOXETINE
     Indication: Ill-defined disorder
     Route: 065
     Dates: start: 20250805
  2. PROPRANOLOL HYDROCHLORIDE [Concomitant]
     Active Substance: PROPRANOLOL HYDROCHLORIDE
     Indication: Ill-defined disorder
     Route: 065
     Dates: start: 20250805, end: 20250812
  3. PROCHLORPERAZINE [Concomitant]
     Active Substance: PROCHLORPERAZINE
     Indication: Ill-defined disorder
     Route: 065
     Dates: start: 20250811
  4. TADALAFIL [Concomitant]
     Active Substance: TADALAFIL
     Indication: Ill-defined disorder
     Route: 065
     Dates: start: 20241002
  5. ISOPROPYL MYRISTATE\MINERAL OIL [Concomitant]
     Active Substance: ISOPROPYL MYRISTATE\MINERAL OIL
     Indication: Ill-defined disorder
     Route: 065
     Dates: start: 20250121
  6. CALCIUM CARBONATE\CHOLECALCIFEROL [Concomitant]
     Active Substance: CALCIUM CARBONATE\CHOLECALCIFEROL
     Indication: Ill-defined disorder
     Route: 065
     Dates: start: 20250324
  7. ALOGLIPTIN [Concomitant]
     Active Substance: ALOGLIPTIN
     Indication: Ill-defined disorder
     Dosage: 1 DOSAGE FORM, Q.A.M. (TAKE ONE TABLET IN THE MORNING - IN DOSSETT)
     Route: 065
     Dates: start: 20250324
  8. ATORVASTATIN [Concomitant]
     Active Substance: ATORVASTATIN
     Indication: Ill-defined disorder
     Route: 065
     Dates: start: 20250324
  9. BISOPROLOL [Concomitant]
     Active Substance: BISOPROLOL
     Indication: Ill-defined disorder
     Dosage: 1 DOSAGE FORM, Q.A.M. (TAKE ONE TABLET ONCE IN THE MORNING - IN DOSSETT)
     Route: 065
     Dates: start: 20250324
  10. CLOPIDOGREL [Concomitant]
     Active Substance: CLOPIDOGREL BISULFATE
     Indication: Ill-defined disorder
     Route: 065
     Dates: start: 20250324
  11. EMPAGLIFLOZIN [Concomitant]
     Active Substance: EMPAGLIFLOZIN
     Indication: Ill-defined disorder
     Route: 065
     Dates: start: 20250324
  12. FINASTERIDE [Concomitant]
     Active Substance: FINASTERIDE
     Indication: Ill-defined disorder
     Dosage: 1 DOSAGE FORM, Q.A.M. (TAKE ONE TABLET ONCE IN THE MORNING - IN DOSSETT )
     Route: 065
     Dates: start: 20250324
  13. LANSOPRAZOLE [Concomitant]
     Active Substance: LANSOPRAZOLE
     Indication: Ill-defined disorder
     Dosage: 1 DOSAGE FORM, Q.A.M. (TAKE ONE TABLET ONCE IN THE MORNING - IN DOSSETT )
     Route: 065
     Dates: start: 20250324
  14. ACETAMINOPHEN [Concomitant]
     Active Substance: ACETAMINOPHEN
     Indication: Ill-defined disorder
     Route: 065
     Dates: start: 20250324
  15. TAMSULOSIN HYDROCHLORIDE [Concomitant]
     Active Substance: TAMSULOSIN HYDROCHLORIDE
     Indication: Ill-defined disorder
     Dosage: 1 DOSAGE FORM, Q.A.M. (TAKE ONE TABLET ONCE IN THE MORNING - IN DOSSETT)
     Route: 065
     Dates: start: 20250324
  16. NIACINAMIDE\PYRIDOXINE HYDROCHLORIDE\RIBOFLAVIN\THIAMINE HYDROCHLORIDE [Concomitant]
     Active Substance: NIACINAMIDE\PYRIDOXINE HYDROCHLORIDE\RIBOFLAVIN\THIAMINE HYDROCHLORIDE
     Indication: Ill-defined disorder
     Route: 065
     Dates: start: 20250324

REACTIONS (1)
  - Hiccups [Not Recovered/Not Resolved]
